FAERS Safety Report 5430116-2 (Version None)
Quarter: 2007Q3

REPORT INFORMATION
  Report Type: 
  Country: None (occurrence: None)
  Receive Date: 20070829
  Receipt Date: 20070823
  Transmission Date: 20080115
  Serious: Yes (Other)
  Sender: FDA-Public Use
  Company Number: US-PFIZER INC-2007070737

PATIENT
  Sex: Female

DRUGS (1)
  1. ACCUPRIL [Suspect]

REACTIONS (5)
  - DIABETES MELLITUS [None]
  - DIABETIC RETINOPATHY [None]
  - MALAISE [None]
  - PHARYNGOLARYNGEAL DISCOMFORT [None]
  - VITH NERVE PARALYSIS [None]
